FAERS Safety Report 9023859 (Version 2)
Quarter: 2014Q3

REPORT INFORMATION
  Report Type: Report from Study
  Country: US (occurrence: US)
  Receive Date: 20130121
  Receipt Date: 20140829
  Transmission Date: 20150326
  Serious: Yes (Hospitalization, Other)
  Sender: FDA-Public Use
  Company Number: US-ELI_LILLY_AND_COMPANY-US201207008151

PATIENT
  Age: 68 Year
  Sex: Female

DRUGS (12)
  1. TERIPARATIDE [Suspect]
     Active Substance: TERIPARATIDE
     Dosage: 20 UG, QD
     Route: 058
     Dates: start: 2011, end: 201207
  2. LYRICA [Concomitant]
     Active Substance: PREGABALIN
  3. METOPROLOL [Concomitant]
     Active Substance: METOPROLOL
  4. VITAMIN D [Concomitant]
     Active Substance: CHOLECALCIFEROL
  5. OMEPRAZOLE. [Concomitant]
     Active Substance: OMEPRAZOLE
     Indication: GASTROOESOPHAGEAL REFLUX DISEASE
  6. TERIPARATIDE [Suspect]
     Active Substance: TERIPARATIDE
     Indication: OSTEOPOROSIS
     Dosage: 20 UG, QD
     Route: 058
     Dates: start: 2011, end: 201207
  7. PREDNISONE. [Concomitant]
     Active Substance: PREDNISONE
     Dosage: 5 MG, UNK
  8. NORVASC [Concomitant]
     Active Substance: AMLODIPINE BESYLATE
  9. LISINOPRIL. [Concomitant]
     Active Substance: LISINOPRIL
  10. COUMADIN [Concomitant]
     Active Substance: WARFARIN SODIUM
  11. CELEBREX [Concomitant]
     Active Substance: CELECOXIB
     Indication: PAIN
  12. TRAMADOL [Concomitant]
     Active Substance: TRAMADOL
     Indication: PAIN

REACTIONS (8)
  - Jaw fracture [Unknown]
  - Jaw fracture [Unknown]
  - Intentional product misuse [Unknown]
  - Pulmonary embolism [Unknown]
  - Venous thrombosis limb [Unknown]
  - Peripheral vascular disorder [Unknown]
  - Coordination abnormal [Unknown]
  - Dizziness [Unknown]

NARRATIVE: CASE EVENT DATE: 201112
